FAERS Safety Report 19258097 (Version 1)
Quarter: 2021Q2

REPORT INFORMATION
  Report Type: Spontaneous
  Country: US (occurrence: US)
  Receive Date: 20210514
  Receipt Date: 20210514
  Transmission Date: 20210717
  Serious: Yes (Other)
  Sender: FDA-Public Use
  Company Number: None

PATIENT
  Sex: Female

DRUGS (5)
  1. RECLAST [Concomitant]
     Active Substance: ZOLEDRONIC ACID
  2. VITAMIN D3 [Concomitant]
     Active Substance: CHOLECALCIFEROL
  3. AMBRISENTAN 5MG TAB CIPLA USA [Suspect]
     Active Substance: AMBRISENTAN
     Indication: PULMONARY ARTERIAL HYPERTENSION
     Route: 048
     Dates: start: 20190924
  4. CEFPODOXIME [Concomitant]
     Active Substance: CEFPODOXIME
  5. PREDNISONE. [Concomitant]
     Active Substance: PREDNISONE

REACTIONS (2)
  - Retinopathy [None]
  - Eye haemorrhage [None]
